FAERS Safety Report 9092253 (Version 4)
Quarter: 2013Q1

REPORT INFORMATION
  Report Type: Spontaneous
  Country: US (occurrence: US)
  Receive Date: 20130131
  Receipt Date: 20130325
  Transmission Date: 20140127
  Serious: Yes (Hospitalization, Other)
  Sender: FDA-Public Use
  Company Number: US-009507513-1301USA014307

PATIENT
  Sex: Male

DRUGS (3)
  1. PEG-INTRON [Suspect]
     Indication: HEPATITIS C
     Dosage: UNKNOWN
     Dates: start: 20130121
  2. REBETOL [Suspect]
     Indication: HEPATITIS C
     Dosage: UNK
     Route: 048
     Dates: start: 20130121
  3. OXYCONTIN [Concomitant]
     Indication: PAIN
     Dosage: UNKNOWN

REACTIONS (7)
  - Chest pain [Unknown]
  - Hypertension [Unknown]
  - Fatigue [Unknown]
  - Fatigue [Unknown]
  - Hypotension [Unknown]
  - Dyspnoea [Unknown]
  - Sinusitis [Unknown]
